FAERS Safety Report 9764274 (Version 3)
Quarter: 2021Q4

REPORT INFORMATION
  Report Type: Spontaneous
  Country: US (occurrence: US)
  Receive Date: 20131217
  Receipt Date: 20211121
  Transmission Date: 20220303
  Serious: No
  Sender: FDA-Public Use
  Company Number: US-009507513-1312USA006427

PATIENT
  Sex: Female
  Weight: 58.05 kg

DRUGS (3)
  1. ZOCOR [Suspect]
     Active Substance: SIMVASTATIN
  2. LOVASTATIN [Suspect]
     Active Substance: LOVASTATIN
  3. ATORVASTATIN [Suspect]
     Active Substance: ATORVASTATIN

REACTIONS (6)
  - Muscle spasms [Unknown]
  - Ill-defined disorder [Unknown]
  - Ill-defined disorder [Unknown]
  - Arthralgia [Unknown]
  - Pain in extremity [Unknown]
  - Drug ineffective [Unknown]
